FAERS Safety Report 5380935-6 (Version None)
Quarter: 2007Q3

REPORT INFORMATION
  Report Type: 
  Country: None (occurrence: None)
  Receive Date: 20070702
  Receipt Date: 20061016
  Transmission Date: 20080115
  Serious: Yes (Other)
  Sender: FDA-Public Use
  Company Number: SPV1-2006-01176

PATIENT
  Age: 43 Year
  Sex: Male

DRUGS (2)
  1. PENTASA [Suspect]
     Indication: COLITIS ULCERATIVE
     Dosage: 4 G DAILY, ORAL
     Route: 048
     Dates: start: 20060820, end: 20060920
  2. PENTASA [Suspect]
     Indication: COLITIS ULCERATIVE
     Dosage: 1 G DAILY, RECTAL
     Route: 054
     Dates: start: 20060820, end: 20060920

REACTIONS (1)
  - PERICARDITIS [None]
